FAERS Safety Report 18555053 (Version 1)
Quarter: 2020Q4

REPORT INFORMATION
  Report Type: Spontaneous
  Country: US (occurrence: US)
  Receive Date: 20201127
  Receipt Date: 20201127
  Transmission Date: 20210114
  Serious: Yes (Death, Hospitalization)
  Sender: FDA-Public Use
  Company Number: US-009507513-2011USA014124

PATIENT
  Sex: Male

DRUGS (1)
  1. JANUVIA [Suspect]
     Active Substance: SITAGLIPTIN PHOSPHATE
     Indication: BLOOD GLUCOSE ABNORMAL
     Dosage: UNK
     Route: 048
     Dates: start: 2018

REACTIONS (2)
  - Chronic obstructive pulmonary disease [Fatal]
  - Adverse event [Unknown]

NARRATIVE: CASE EVENT DATE: 2019
